FAERS Safety Report 6268498-4 (Version None)
Quarter: 2009Q3

REPORT INFORMATION
  Report Type: 
  Country: None (occurrence: None)
  Receive Date: 20090715
  Receipt Date: 20090707
  Transmission Date: 20100115
  Serious: Yes (Hospitalization)
  Sender: FDA-Public Use
  Company Number: BR-ASTRAZENECA-2009UW19018

PATIENT
  Age: 57 Year
  Sex: Male

DRUGS (6)
  1. SELOZOK [Suspect]
     Route: 048
     Dates: start: 20080101
  2. OMEPRAZOLE [Suspect]
     Route: 048
  3. MARCUMAR [Concomitant]
     Route: 048
  4. VASOPRIL [Concomitant]
     Route: 048
  5. HYDROCHLOROTHIAZIDE [Concomitant]
     Route: 048
  6. SIMVASTATIN [Concomitant]
     Route: 048

REACTIONS (3)
  - ABDOMINAL PAIN UPPER [None]
  - GASTROINTESTINAL HAEMORRHAGE [None]
  - HIATUS HERNIA [None]
